FAERS Safety Report 8150792-3 (Version None)
Quarter: 2012Q1

REPORT INFORMATION
  Report Type: 
  Country: None (occurrence: None)
  Receive Date: 20120220
  Receipt Date: 20120209
  Transmission Date: 20120608
  Serious: Yes (Hospitalization)
  Sender: FDA-Public Use
  Company Number: JP-ASTRAZENECA-2012SE08763

PATIENT
  Age: 30319 Day
  Sex: Female

DRUGS (13)
  1. RENIVACE [Concomitant]
     Indication: HYPERTENSION
     Route: 048
     Dates: start: 20110621
  2. LIPITOR [Concomitant]
     Indication: HYPERCHOLESTEROLAEMIA
     Route: 048
     Dates: start: 20110622
  3. TORSEMIDE [Concomitant]
     Indication: CARDIAC MONITORING ABNORMAL
     Route: 048
     Dates: start: 20110625
  4. CARVEDILOL [Concomitant]
     Route: 048
     Dates: start: 20110916
  5. PLAVIX [Suspect]
     Indication: ACUTE CORONARY SYNDROME
     Route: 048
     Dates: start: 20110620
  6. PLACEBO [Suspect]
     Indication: ACUTE CORONARY SYNDROME
     Route: 048
     Dates: start: 20110620
  7. SIGMART [Concomitant]
     Route: 048
     Dates: start: 20110621
  8. SIGMART [Concomitant]
     Indication: ANGINA PECTORIS
     Route: 042
     Dates: start: 20110620, end: 20110620
  9. GLIMICRON [Concomitant]
     Indication: TYPE 2 DIABETES MELLITUS
     Route: 048
     Dates: start: 20110622
  10. REBAMIPIDE [Concomitant]
     Indication: GASTRITIS PROPHYLAXIS
     Route: 048
     Dates: start: 20110113
  11. ASPIRIN [Suspect]
     Indication: ACUTE CORONARY SYNDROME
     Route: 048
     Dates: start: 20110620
  12. NITROGLYCERIN [Concomitant]
     Indication: CHEST PAIN
     Dosage: AS REQUIRED
     Route: 060
     Dates: start: 20110704
  13. CARVEDILOL [Concomitant]
     Indication: CARDIAC FAILURE CHRONIC
     Route: 048
     Dates: start: 20110819, end: 20110915

REACTIONS (1)
  - SUPRAVENTRICULAR TACHYCARDIA [None]
